FAERS Safety Report 7633545-1 (Version None)
Quarter: 2011Q3

REPORT INFORMATION
  Report Type: 
  Country: None (occurrence: None)
  Receive Date: 20110725
  Receipt Date: 20110719
  Transmission Date: 20111222
  Serious: Yes (Other)
  Sender: FDA-Public Use
  Company Number: TW-PFIZER INC-2011163862

PATIENT
  Age: 55 Year
  Sex: Female

DRUGS (3)
  1. DILANTIN [Concomitant]
     Indication: PARTIAL SEIZURES
  2. GABAPENTIN [Concomitant]
     Indication: PARTIAL SEIZURES
  3. GEODON [Suspect]
     Indication: PSYCHOTIC DISORDER
     Dosage: 1 CAPSULE  BID

REACTIONS (6)
  - HOSTILITY [None]
  - AGGRESSION [None]
  - RESTLESSNESS [None]
  - DELUSION [None]
  - HALLUCINATION, AUDITORY [None]
  - POOR QUALITY SLEEP [None]
